FAERS Safety Report 12897112 (Version 1)
Quarter: 2016Q4

REPORT INFORMATION
  Report Type: Spontaneous
  Country: US (occurrence: US)
  Receive Date: 20161031
  Receipt Date: 20161031
  Transmission Date: 20170207
  Serious: No
  Sender: FDA-Public Use
  Company Number: None

PATIENT
  Age: 77 Year
  Sex: Female
  Weight: 61.24 kg

DRUGS (8)
  1. ALEVE [Concomitant]
     Active Substance: NAPROXEN SODIUM
  2. MULTI VITAMIN [Concomitant]
     Active Substance: VITAMINS
  3. MAGNESIUM [Concomitant]
     Active Substance: MAGNESIUM
  4. ASA [Concomitant]
     Active Substance: ASPIRIN
  5. SUCRALFATE 1 GM TAB GREE GENERIC FOR CARAFATE [Suspect]
     Active Substance: SUCRALFATE
     Indication: GASTROOESOPHAGEAL REFLUX DISEASE
     Dosage: SUCRALFATE 2 TABS PO TWICE BEFORE BREAKFAST + DINNER
     Route: 048
     Dates: start: 20161011, end: 20161015
  6. ZETIA [Concomitant]
     Active Substance: EZETIMIBE
  7. FISH OIL [Concomitant]
     Active Substance: FISH OIL
  8. CALCIUM [Concomitant]
     Active Substance: CALCIUM

REACTIONS (9)
  - Malaise [None]
  - Faeces discoloured [None]
  - Oesophageal pain [None]
  - Throat irritation [None]
  - Fatigue [None]
  - Dyspepsia [None]
  - Flatulence [None]
  - Back pain [None]
  - Abdominal pain [None]

NARRATIVE: CASE EVENT DATE: 20161015
